FAERS Safety Report 19735680 (Version 1)
Quarter: 2021Q3

REPORT INFORMATION
  Report Type: Spontaneous
  Country: SE (occurrence: SE)
  Receive Date: 20210824
  Receipt Date: 20210824
  Transmission Date: 20211014
  Serious: Yes (Disabling)
  Sender: FDA-Public Use
  Company Number: SE-TEVA-2021-SE-1943400

PATIENT
  Age: 56 Year
  Sex: Female
  Weight: 90 kg

DRUGS (1)
  1. ENALAPRIL TEVA 20 MG TABLETT [Suspect]
     Active Substance: ENALAPRIL MALEATE
     Indication: HYPERTENSION
     Dosage: 20 MG
     Route: 048
     Dates: start: 20141014, end: 20210721

REACTIONS (8)
  - Chest discomfort [Recovered/Resolved]
  - Weight increased [Recovered/Resolved]
  - Muscle spasms [Recovered/Resolved]
  - Parosmia [Recovering/Resolving]
  - Taste disorder [Recovering/Resolving]
  - Headache [Recovered/Resolved]
  - Fatigue [Recovered/Resolved]
  - Arrhythmia [Recovered/Resolved]

NARRATIVE: CASE EVENT DATE: 2018
